FAERS Safety Report 5835916-2 (Version None)
Quarter: 2008Q3

REPORT INFORMATION
  Report Type: 
  Country: None (occurrence: None)
  Receive Date: 20080805
  Receipt Date: 20080721
  Transmission Date: 20090109
  Serious: Yes (Hospitalization)
  Sender: FDA-Public Use
  Company Number: CO-JNJFOC-20080604145

PATIENT
  Sex: Female
  Weight: 75 kg

DRUGS (1)
  1. DECITABINE   (DECITABINE)        LYOPHILIZED POWDER [Suspect]
     Indication: MYELODYSPLASTIC SYNDROME
     Dosage: 120 MG/M2, INTRAVENOUS
     Route: 042

REACTIONS (6)
  - ARTHRITIS [None]
  - BONE MARROW FAILURE [None]
  - DEEP VEIN THROMBOSIS [None]
  - FEBRILE NEUTROPENIA [None]
  - HEPATITIS [None]
  - MUCOSAL INFLAMMATION [None]
